FAERS Safety Report 22324926 (Version 1)
Quarter: 2023Q2

REPORT INFORMATION
  Report Type: Spontaneous
  Country: US (occurrence: US)
  Receive Date: 20230516
  Receipt Date: 20230516
  Transmission Date: 20230722
  Serious: Yes (Other)
  Sender: FDA-Public Use
  Company Number: US-MYOVANT SCIENCES GMBH-2023MYSCI0500309

PATIENT
  Age: 80 Year
  Sex: Male

DRUGS (4)
  1. ORGOVYX [Suspect]
     Active Substance: RELUGOLIX
     Indication: Prostate cancer
     Dosage: 120 MILLIGRAM, QD
     Route: 048
  2. APALUTAMIDE [Suspect]
     Active Substance: APALUTAMIDE
     Indication: Product used for unknown indication
     Dosage: UNKNOWN
     Route: 065
  3. APALUTAMIDE [Suspect]
     Active Substance: APALUTAMIDE
     Dosage: UNKNOWN HALF DOSAGE
     Route: 065
  4. APALUTAMIDE [Suspect]
     Active Substance: APALUTAMIDE
     Dosage: UNKNOWN FULL DOSAGE
     Route: 065

REACTIONS (3)
  - Rectal haemorrhage [Recovering/Resolving]
  - Rash [Unknown]
  - Incorrect dosage administered [Not Recovered/Not Resolved]

NARRATIVE: CASE EVENT DATE: 20230509
